FAERS Safety Report 5839753-4 (Version None)
Quarter: 2008Q3

REPORT INFORMATION
  Report Type: 
  Country: None (occurrence: None)
  Receive Date: 20080811
  Receipt Date: 20080806
  Transmission Date: 20090109
  Serious: Yes (Disabling, Other)
  Sender: FDA-Public Use
  Company Number: DE-BRISTOL-MYERS SQUIBB COMPANY-14223317

PATIENT
  Age: 76 Year
  Sex: Male
  Weight: 71 kg

DRUGS (6)
  1. HYDROXYUREA [Suspect]
     Dosage: 1 DF - 1 CAPSULE
     Route: 048
     Dates: start: 20040101
  2. CARMEN [Concomitant]
     Dosage: 1 DF = 10UNIT NOT SPECIFIED.
  3. ASPIRIN [Concomitant]
     Dosage: 1 DF = 50UNIT NOT SPECIFIED.
  4. EUGLUCON [Concomitant]
  5. OMEPRAZOLE [Concomitant]
  6. CREON [Concomitant]

REACTIONS (2)
  - PAIN [None]
  - PANCREATITIS [None]
